FAERS Safety Report 16924377 (Version 1)
Quarter: 2019Q4

REPORT INFORMATION
  Report Type: Spontaneous
  Country: US (occurrence: US)
  Receive Date: 20191016
  Receipt Date: 20191016
  Transmission Date: 20200122
  Serious: Yes (Hospitalization)
  Sender: FDA-Public Use
  Company Number: US-MYLANLABS-2019M1097373

PATIENT
  Age: 40 Year
  Sex: Female

DRUGS (3)
  1. DAPSONE. [Suspect]
     Active Substance: DAPSONE
     Dosage: IN A SUICIDE ATTEMPT
     Route: 065
  2. DAPSONE. [Suspect]
     Active Substance: DAPSONE
     Indication: CHRONIC SPONTANEOUS URTICARIA
     Dosage: FOR CHRONIC AUTOIMMUNE URTICARIA TREATMENT
     Route: 065
  3. GABAPENTIN. [Suspect]
     Active Substance: GABAPENTIN
     Indication: PRODUCT USED FOR UNKNOWN INDICATION
     Dosage: 27 DOSAGE FORM
     Route: 065

REACTIONS (3)
  - Intentional overdose [Recovered/Resolved]
  - Methaemoglobinaemia [Recovered/Resolved]
  - Suicide attempt [Recovered/Resolved]
